FAERS Safety Report 18409475 (Version 1)
Quarter: 2020Q4

REPORT INFORMATION
  Report Type: Spontaneous
  Country: HU (occurrence: HU)
  Receive Date: 20201021
  Receipt Date: 20201021
  Transmission Date: 20210114
  Serious: Yes (Other)
  Sender: FDA-Public Use
  Company Number: HU-MYLANLABS-2020M1087795

PATIENT
  Age: 30 Year
  Sex: Male

DRUGS (9)
  1. CLOZAPINE. [Suspect]
     Active Substance: CLOZAPINE
     Indication: SCHIZOPHRENIA
     Dosage: MAINTENANCE DOSE WAS 300 MG
     Route: 065
  2. ZUCLOPENTHIXOL ACETATE [Concomitant]
     Active Substance: ZUCLOPENTHIXOL ACETATE
     Indication: PHYSICAL DISABILITY
  3. VALPROIC ACID. [Concomitant]
     Active Substance: VALPROIC ACID
     Indication: ANXIETY
     Dosage: UNK
     Route: 065
  4. ZUCLOPENTHIXOL ACETATE [Concomitant]
     Active Substance: ZUCLOPENTHIXOL ACETATE
     Indication: ANXIETY
     Dosage: UNK
     Route: 065
  5. CLONAZEPAM. [Concomitant]
     Active Substance: CLONAZEPAM
     Indication: ANXIETY
     Dosage: UNK
     Route: 065
  6. ZUCLOPENTHIXOL ACETATE [Concomitant]
     Active Substance: ZUCLOPENTHIXOL ACETATE
     Indication: DISTURBANCE IN ATTENTION
  7. SERTINDOLE [Suspect]
     Active Substance: SERTINDOLE
     Indication: SCHIZOPHRENIA
     Dosage: UNK
     Route: 065
  8. ALPRAZOLAM. [Concomitant]
     Active Substance: ALPRAZOLAM
     Indication: ANXIETY
     Dosage: UNK
     Route: 065
  9. ZUCLOPENTHIXOL ACETATE [Concomitant]
     Active Substance: ZUCLOPENTHIXOL ACETATE
     Indication: FEAR OF DEATH

REACTIONS (2)
  - Withdrawal syndrome [Recovered/Resolved]
  - Drug ineffective [Unknown]
